FAERS Safety Report 19139756 (Version 1)
Quarter: 2021Q2

REPORT INFORMATION
  Report Type: Spontaneous
  Country: US (occurrence: US)
  Receive Date: 20210415
  Receipt Date: 20210415
  Transmission Date: 20210717
  Serious: Yes (Hospitalization)
  Sender: FDA-Public Use
  Company Number: None

PATIENT
  Age: 75 Year
  Sex: Male
  Weight: 76.01 kg

DRUGS (6)
  1. KEPPRA [Concomitant]
     Active Substance: LEVETIRACETAM
     Dates: start: 20210217, end: 20210313
  2. XTANDI [Concomitant]
     Active Substance: ENZALUTAMIDE
     Dates: start: 20200420
  3. CEFEPIME [Concomitant]
     Active Substance: CEFEPIME HYDROCHLORIDE
  4. VALACYCLOVIR 500 MG TABLET [Concomitant]
     Dates: start: 20210215
  5. TECARTUS [Suspect]
     Active Substance: BREXUCABTAGENE AUTOLEUCEL
     Indication: MANTLE CELL LYMPHOMA
     Dosage: ?          OTHER FREQUENCY:ONCE;?
     Route: 042
     Dates: start: 20210222, end: 20210222
  6. CYCLOPHOSPHAMIDE. [Concomitant]
     Active Substance: CYCLOPHOSPHAMIDE
     Dates: start: 20210217, end: 20210219

REACTIONS (5)
  - Pneumonia [None]
  - Serum ferritin increased [None]
  - Atelectasis [None]
  - Pyrexia [None]
  - Hypotension [None]

NARRATIVE: CASE EVENT DATE: 20210227
